FAERS Safety Report 4917340-X (Version None)
Quarter: 2006Q1

REPORT INFORMATION
  Report Type: 
  Country: None (occurrence: None)
  Receive Date: 20060221
  Receipt Date: 20060125
  Transmission Date: 20060701
  Serious: Yes (Hospitalization)
  Sender: FDA-Public Use
  Company Number: JP-MERCK-0601USA03440

PATIENT
  Age: 57 Year
  Sex: Female
  Weight: 85 kg

DRUGS (4)
  1. COZAAR [Suspect]
     Indication: HYPERTENSION
     Route: 048
     Dates: start: 20051214, end: 20060103
  2. ATELEC [Concomitant]
     Indication: HYPERTENSION
     Route: 048
     Dates: start: 20051214, end: 20060103
  3. GLUFAST [Concomitant]
     Indication: DIABETES MELLITUS
     Route: 048
     Dates: start: 20051214, end: 20060103
  4. MEDICON [Concomitant]
     Indication: COUGH
     Route: 048
     Dates: start: 20051221, end: 20051228

REACTIONS (2)
  - DEHYDRATION [None]
  - RHABDOMYOLYSIS [None]
